FAERS Safety Report 23550756 (Version 1)
Quarter: 2024Q1

REPORT INFORMATION
  Report Type: Spontaneous
  Country: CA (occurrence: CA)
  Receive Date: 20240221
  Receipt Date: 20240221
  Transmission Date: 20240410
  Serious: Yes (Death)
  Sender: FDA-Public Use
  Company Number: CA-HLS-202400265

PATIENT
  Sex: Male

DRUGS (10)
  1. BETA-BLOCKING AGENTS [Concomitant]
     Dosage: NOT SPECIFIED DOSAGE FORM
     Route: 065
  2. CALCIUM CHLORIDE [Concomitant]
     Active Substance: CALCIUM CHLORIDE
     Dosage: NOT SPECIFIED DOSAGE FORM
     Route: 065
  3. CLOZARIL [Suspect]
     Active Substance: CLOZAPINE
     Indication: Schizophrenia
     Dosage: AMOUNT: 400 MILLIGRAM?TABLETS DOSAGE FORM
     Route: 065
  4. CLOZARIL [Suspect]
     Active Substance: CLOZAPINE
     Indication: Schizophrenia
     Dosage: AMOUNT: 700 MILLIGRAM?TABLETS DOSAGE FORM
     Route: 065
  5. EPHEDRINE HYDROCHLORIDE [Concomitant]
     Active Substance: EPHEDRINE HYDROCHLORIDE
     Dosage: NOT SPECIFIED DOSAGE FORM
     Route: 065
  6. EPINEPHRINE [Concomitant]
     Active Substance: EPINEPHRINE
     Dosage: NOT SPECIFIED DOSAGE FORM
     Route: 065
  7. LIDOCAINE [Concomitant]
     Active Substance: LIDOCAINE
     Dosage: NOT SPECIFIED DOSAGE FORM
     Route: 065
  8. LITHIUM [Concomitant]
     Active Substance: LITHIUM
     Dosage: NOT SPECIFIED DOSAGE FORM
     Route: 065
  9. MAGNESIUM SULFATE [Concomitant]
     Active Substance: MAGNESIUM SULFATE\MAGNESIUM SULFATE HEPTAHYDRATE
     Dosage: NOT SPECIFIED DOSAGE FORM
     Route: 065
  10. SODIUM BICARBONATE [Concomitant]
     Active Substance: SODIUM BICARBONATE
     Dosage: NOT SPECIFIED DOSAGE FORM
     Route: 065

REACTIONS (6)
  - Accidental death [Fatal]
  - Cardio-respiratory arrest [Fatal]
  - Dyspnoea [Fatal]
  - Loss of consciousness [Fatal]
  - Tachycardia [Fatal]
  - Ventricular arrhythmia [Fatal]
